FAERS Safety Report 8094169-8 (Version None)
Quarter: 2012Q1

REPORT INFORMATION
  Report Type: 
  Country: None (occurrence: None)
  Receive Date: 20120130
  Receipt Date: 20120130
  Transmission Date: 20120608
  Serious: No
  Sender: FDA-Public Use
  Company Number: None

PATIENT
  Sex: Female
  Weight: 54.431 kg

DRUGS (1)
  1. DRYING LOTION [Suspect]
     Indication: ACNE
     Route: 061
     Dates: start: 20111216, end: 20120102

REACTIONS (3)
  - THERMAL BURN [None]
  - SCAR [None]
  - PRODUCT LABEL ISSUE [None]
